FAERS Safety Report 14305561 (Version 1)
Quarter: 2017Q4

REPORT INFORMATION
  Report Type: Report from Study
  Country: JP (occurrence: JP)
  Receive Date: 20171219
  Receipt Date: 20171219
  Transmission Date: 20180321
  Serious: Yes (Other)
  Sender: FDA-Public Use
  Company Number: JP-OTSUKA-001152

PATIENT
  Age: 40 Year
  Sex: Female
  Weight: 66 kg

DRUGS (39)
  1. ARIPIPRAZOLE. [Suspect]
     Active Substance: ARIPIPRAZOLE
     Dosage: 6 MG, BID
     Route: 048
     Dates: start: 20071023, end: 20071112
  2. ARIPIPRAZOLE. [Suspect]
     Active Substance: ARIPIPRAZOLE
     Dosage: 9 MG, QD
     Route: 048
     Dates: start: 20080815, end: 20080821
  3. SILECE [Concomitant]
     Active Substance: FLUNITRAZEPAM
     Indication: SLEEP DISORDER
     Dosage: 2 MG, QD
     Route: 048
     Dates: start: 20070904
  4. WYPAX [Concomitant]
     Active Substance: LORAZEPAM
     Dosage: 3 MG, QD
     Route: 048
     Dates: start: 20071203, end: 20080117
  5. WYPAX [Concomitant]
     Active Substance: LORAZEPAM
     Dosage: 3 MG, QD
     Route: 048
     Dates: start: 20080201, end: 20080310
  6. WYPAX [Concomitant]
     Active Substance: LORAZEPAM
     Dosage: 3 MG, QD
     Route: 048
     Dates: start: 20080627
  7. ARIPIPRAZOLE. [Suspect]
     Active Substance: ARIPIPRAZOLE
     Dosage: 6 MG, TID
     Route: 048
     Dates: start: 20071113, end: 20071203
  8. FASTIC [Concomitant]
     Active Substance: NATEGLINIDE
     Indication: DIABETES MELLITUS
     Dosage: 270 MG, QD
     Route: 048
     Dates: start: 20070904, end: 20080211
  9. SENNOSIDE [Concomitant]
     Active Substance: SENNOSIDES
     Dosage: 12 MG, QD
     Route: 048
     Dates: start: 20071120, end: 20080104
  10. TRIHEXYPHENIDYL HYDROCHLORIDE. [Concomitant]
     Active Substance: TRIHEXYPHENIDYL HYDROCHLORIDE
     Indication: PRODUCT USED FOR UNKNOWN INDICATION
     Dosage: 4 MG, QD
     Route: 048
     Dates: start: 20070904, end: 20071004
  11. TRIHEXYPHENIDYL HYDROCHLORIDE. [Concomitant]
     Active Substance: TRIHEXYPHENIDYL HYDROCHLORIDE
     Dosage: 4 MG, QD
     Route: 048
     Dates: start: 20080415, end: 20080807
  12. WYPAX [Concomitant]
     Active Substance: LORAZEPAM
     Dosage: 1.5 MG, QD
     Route: 048
     Dates: start: 20080118, end: 20080131
  13. TOKAKUJOKITO [Concomitant]
     Indication: PRODUCT USED FOR UNKNOWN INDICATION
     Dosage: 4.5 G, QD
     Route: 048
     Dates: start: 20080502, end: 20080717
  14. GOODMIN [Concomitant]
     Active Substance: BROTIZOLAM
     Indication: SLEEP DISORDER
     Dosage: 0.25 MG, QD
     Route: 048
     Dates: start: 20070904
  15. SEDIEL [Concomitant]
     Active Substance: TANDOSPIRONE
     Indication: SCHIZOPHRENIA
     Dosage: 30 MG, QD
     Route: 048
     Dates: start: 20071005, end: 20071011
  16. CRESTOR [Concomitant]
     Active Substance: ROSUVASTATIN CALCIUM
     Indication: PRODUCT USED FOR UNKNOWN INDICATION
     Dosage: 2.5 MG, QD
     Route: 048
     Dates: start: 20071029
  17. ARIPIPRAZOLE. [Suspect]
     Active Substance: ARIPIPRAZOLE
     Dosage: 12 MG, QD
     Route: 048
     Dates: start: 20080408, end: 20080814
  18. WYPAX [Concomitant]
     Active Substance: LORAZEPAM
     Dosage: 1.5 MG, QD
     Route: 048
     Dates: start: 20080325, end: 20080522
  19. RISPERDAL [Concomitant]
     Active Substance: RISPERIDONE
     Indication: SCHIZOPHRENIA
     Dosage: 4 MG, QD
     Route: 048
     Dates: start: 20070904, end: 20071004
  20. RISPERDAL [Concomitant]
     Active Substance: RISPERIDONE
     Dosage: 2 MG, QD
     Route: 048
     Dates: start: 20071022, end: 20071126
  21. TRIHEXYPHENIDYL HYDROCHLORIDE. [Concomitant]
     Active Substance: TRIHEXYPHENIDYL HYDROCHLORIDE
     Dosage: 2 MG, QD
     Route: 048
     Dates: start: 20071005, end: 20071029
  22. ARIPIPRAZOLE. [Suspect]
     Active Substance: ARIPIPRAZOLE
     Dosage: 9 MG, QD
     Route: 048
     Dates: start: 20071016, end: 20071022
  23. RISPERDAL [Concomitant]
     Active Substance: RISPERIDONE
     Dosage: 3 MG, QD
     Route: 048
     Dates: start: 20071005, end: 20071022
  24. RISPERDAL [Concomitant]
     Active Substance: RISPERIDONE
     Dosage: 1 MG, QD
     Route: 048
     Dates: start: 20071127, end: 20071203
  25. WYPAX [Concomitant]
     Active Substance: LORAZEPAM
     Indication: SCHIZOPHRENIA
     Dosage: 1.5 MG, QD
     Route: 048
     Dates: start: 20071012, end: 20071104
  26. ARIPIPRAZOLE. [Suspect]
     Active Substance: ARIPIPRAZOLE
     Indication: SCHIZOPHRENIA
     Dosage: 6 MG, QD
     Route: 048
     Dates: start: 20080822, end: 20080829
  27. ARIPIPRAZOLE. [Suspect]
     Active Substance: ARIPIPRAZOLE
     Dosage: 6 MG, TID
     Route: 048
     Dates: start: 20080104, end: 20080225
  28. FASTIC [Concomitant]
     Active Substance: NATEGLINIDE
     Dosage: 270 MG, QD
     Route: 048
     Dates: start: 20080318, end: 20080501
  29. AMOBAN [Concomitant]
     Active Substance: ZOPICLONE
     Indication: SLEEP DISORDER
     Dosage: 10 MG, QD
     Route: 048
     Dates: start: 20071011, end: 20071119
  30. WYPAX [Concomitant]
     Active Substance: LORAZEPAM
     Dosage: 2 MG, QD
     Route: 048
     Dates: start: 20080311, end: 20080324
  31. ARIPIPRAZOLE. [Suspect]
     Active Substance: ARIPIPRAZOLE
     Dosage: 12 MG, BID
     Route: 048
     Dates: start: 20071204, end: 20080103
  32. ARIPIPRAZOLE. [Suspect]
     Active Substance: ARIPIPRAZOLE
     Dosage: 7.5 MG, BID
     Route: 048
     Dates: start: 20080226, end: 20080407
  33. LIPITOR [Concomitant]
     Active Substance: ATORVASTATIN CALCIUM
     Indication: HYPERLIPIDAEMIA
     Dosage: 10 MG, QD
     Route: 048
     Dates: start: 20070804, end: 20071029
  34. SENNOSIDE [Concomitant]
     Active Substance: SENNOSIDES
     Indication: CONSTIPATION
     Dosage: 24 MG, QD
     Route: 048
     Dates: start: 20070904, end: 20071119
  35. AMOBAN [Concomitant]
     Active Substance: ZOPICLONE
     Dosage: 7.5 MG, QD
     Route: 048
     Dates: start: 20071120
  36. WYPAX [Concomitant]
     Active Substance: LORAZEPAM
     Dosage: 3 MG, QD
     Route: 048
     Dates: start: 20071105, end: 20071112
  37. WYPAX [Concomitant]
     Active Substance: LORAZEPAM
     Dosage: 1.5 MG, QD
     Route: 048
     Dates: start: 20071113, end: 20071202
  38. WYPAX [Concomitant]
     Active Substance: LORAZEPAM
     Dosage: 2 MG, QD
     Route: 048
     Dates: start: 20080523, end: 20080626
  39. ARIPIPRAZOLE. [Suspect]
     Active Substance: ARIPIPRAZOLE
     Dosage: 6 MG, QD
     Route: 048
     Dates: start: 20071012, end: 20071015

REACTIONS (5)
  - Hypertriglyceridaemia [Recovered/Resolved]
  - Muscular weakness [Recovering/Resolving]
  - Blood glucose increased [Recovering/Resolving]
  - Anaemia [Recovered/Resolved]
  - Weight increased [Not Recovered/Not Resolved]

NARRATIVE: CASE EVENT DATE: 20071113
